FAERS Safety Report 6703006-2 (Version None)
Quarter: 2010Q2

REPORT INFORMATION
  Report Type: 
  Country: None (occurrence: None)
  Receive Date: 20100429
  Receipt Date: 20100429
  Transmission Date: 20101027
  Serious: Yes (Other)
  Sender: FDA-Public Use
  Company Number: None

PATIENT
  Age: 11 Year
  Sex: Female
  Weight: 40 kg

DRUGS (2)
  1. VANCOMYCIN [Suspect]
     Indication: PYREXIA
     Dosage: 450MG IV ONE TIME DOSE
     Route: 042
     Dates: start: 20090704
  2. VANCOMYCIN [Suspect]
     Indication: SOFT TISSUE INFECTION
     Dosage: 450MG IV ONE TIME DOSE
     Route: 042
     Dates: start: 20090704

REACTIONS (3)
  - DRUG TOXICITY [None]
  - INFUSION RELATED REACTION [None]
  - PRURITUS [None]
